FAERS Safety Report 5012821-5 (Version None)
Quarter: 2006Q2

REPORT INFORMATION
  Report Type: 
  Country: None (occurrence: None)
  Receive Date: 20060530
  Receipt Date: 20060403
  Transmission Date: 20061013
  Serious: No
  Sender: FDA-Public Use
  Company Number: US-BRISTOL-MYERS SQUIBB COMPANY-13334404

PATIENT
  Age: 4 Decade
  Sex: Male

DRUGS (4)
  1. ERBITUX [Suspect]
     Indication: COLON CANCER
     Route: 042
     Dates: start: 20060101, end: 20060101
  2. ZOFRAN [Concomitant]
     Indication: PREMEDICATION
     Dates: start: 20060101, end: 20060101
  3. CAMPTOSAR [Concomitant]
  4. MULTI-VITAMIN [Concomitant]

REACTIONS (2)
  - DERMATITIS ACNEIFORM [None]
  - NAIL DISORDER [None]
